FAERS Safety Report 8979918 (Version 1)
Quarter: 2012Q4

REPORT INFORMATION
  Report Type: 
  Country: US (occurrence: US)
  Receive Date: 20121212
  Receipt Date: 20121212
  Transmission Date: 20130627
  Serious: Yes (Death)
  Sender: FDA-Public Use
  Company Number: US-ASTELLAS-1119947

PATIENT
  Sex: Female

DRUGS (2)
  1. TARCEVA [Suspect]
     Indication: LUNG NEOPLASM MALIGNANT
     Route: 048
     Dates: start: 20110712, end: 20110713
  2. TARCEVA [Suspect]
     Indication: BLADDER CANCER
     Route: 048
     Dates: start: 20110716, end: 20110719

REACTIONS (5)
  - Death [Fatal]
  - Diarrhoea [Unknown]
  - Dyspepsia [Unknown]
  - Breast pain [Unknown]
  - Musculoskeletal chest pain [Unknown]
